FAERS Safety Report 16623655 (Version 1)
Quarter: 2019Q3

REPORT INFORMATION
  Report Type: Spontaneous
  Country: ZA (occurrence: ZA)
  Receive Date: 20190724
  Receipt Date: 20190724
  Transmission Date: 20191004
  Serious: Yes (Hospitalization, Other)
  Sender: FDA-Public Use
  Company Number: ZA-PFIZER INC-2019308969

PATIENT
  Age: 28 Year
  Sex: Male
  Weight: 62 kg

DRUGS (9)
  1. PAS [Suspect]
     Active Substance: AMINOSALICYLIC ACID
     Indication: TUBERCULOSIS
     Dosage: 8 G, UNK
     Dates: start: 20190506, end: 20190528
  2. NEVIRAPINE. [Suspect]
     Active Substance: NEVIRAPINE
     Dosage: 200 MG, 2X/DAY
     Dates: start: 20190311, end: 20190528
  3. PREGABALIN. [Suspect]
     Active Substance: PREGABALIN
     Dosage: 75 MG, 2X/DAY
     Dates: start: 20190518, end: 20190528
  4. EMTRICITABINE/TENOFOVIR [Concomitant]
     Dosage: UNK
     Dates: start: 20190311, end: 20190528
  5. DELAMANID [Suspect]
     Active Substance: DELAMANID
     Indication: TUBERCULOSIS
     Dosage: 100 MG, 2X/DAY
     Dates: start: 20190504, end: 20190528
  6. PYRAZINAMIDE. [Suspect]
     Active Substance: PYRAZINAMIDE
     Indication: TUBERCULOSIS
     Dosage: 1.5 G, UNK
     Dates: start: 20190311, end: 20190528
  7. CLOFAZIMINE [Concomitant]
     Active Substance: CLOFAZIMINE
     Dosage: UNK
     Dates: start: 20190311, end: 20190528
  8. PYRIDOXINE [Concomitant]
     Active Substance: PYRIDOXINE
     Dosage: UNK
     Dates: start: 20190311
  9. BEDAQUILINE [Suspect]
     Active Substance: BEDAQUILINE
     Indication: TUBERCULOSIS
     Dosage: 200 MG, UNK(THREE TIMES/WEEK)
     Dates: start: 20190311, end: 20190528

REACTIONS (28)
  - Aspartate aminotransferase increased [Unknown]
  - Blood albumin decreased [Unknown]
  - Haemoglobin decreased [Unknown]
  - International normalised ratio increased [Unknown]
  - Mean platelet volume increased [Unknown]
  - Blood sodium decreased [Unknown]
  - Mean cell haemoglobin concentration decreased [Unknown]
  - Pneumothorax [Unknown]
  - Acute respiratory distress syndrome [Unknown]
  - Lymphocyte count decreased [Unknown]
  - Respiratory failure [Unknown]
  - Bilirubin conjugated increased [Unknown]
  - Blood chloride decreased [Unknown]
  - Blood creatinine decreased [Unknown]
  - Mean cell haemoglobin decreased [Unknown]
  - Alanine aminotransferase increased [Unknown]
  - Blood bilirubin increased [Unknown]
  - Blood lactate dehydrogenase decreased [Unknown]
  - CD4 lymphocytes decreased [Unknown]
  - Glomerular filtration rate decreased [Unknown]
  - Platelet count decreased [Unknown]
  - Blood calcium decreased [Unknown]
  - Drug-induced liver injury [Recovering/Resolving]
  - Blood alkaline phosphatase increased [Unknown]
  - Gamma-glutamyltransferase increased [Unknown]
  - Haematocrit decreased [Unknown]
  - Red blood cell count decreased [Unknown]
  - Red cell distribution width increased [Unknown]

NARRATIVE: CASE EVENT DATE: 20190524
